FAERS Safety Report 20709702 (Version 1)
Quarter: 2022Q2

REPORT INFORMATION
  Report Type: Spontaneous
  Country: JP (occurrence: JP)
  Receive Date: 20220414
  Receipt Date: 20220414
  Transmission Date: 20220721
  Serious: No
  Sender: FDA-Public Use
  Company Number: JP-PFIZER INC-202200092822

PATIENT
  Sex: Male

DRUGS (1)
  1. GENOTROPIN [Suspect]
     Active Substance: SOMATROPIN
     Dosage: 1.0 MG, ONCE A DAY
     Route: 058

REACTIONS (4)
  - Injection site extravasation [Unknown]
  - Device use error [Unknown]
  - Incorrect dose administered by device [Unknown]
  - Device mechanical issue [Unknown]
